FAERS Safety Report 9471591 (Version 1)
Quarter: 2013Q3

REPORT INFORMATION
  Report Type: Spontaneous
  Country: GB (occurrence: None)
  Receive Date: 20130819
  Receipt Date: 20130819
  Transmission Date: 20140515
  Serious: Yes (Life-Threatening, Hospitalization, Disabling, Other)
  Sender: FDA-Public Use
  Company Number: 2013GMK006497

PATIENT
  Age: 66 Year
  Sex: Female
  Weight: 52 kg

DRUGS (8)
  1. GABAPENTIN [Suspect]
     Route: 048
     Dates: start: 20120901
  2. STRONTIUM RANELATE [Suspect]
     Route: 048
     Dates: start: 20120901, end: 20130730
  3. STRONTIUM RANELATE [Suspect]
     Indication: OSTEOARTHRITIS
     Route: 048
     Dates: start: 20120901, end: 20130730
  4. STRONTIUM RANELATE [Suspect]
     Route: 048
     Dates: start: 20120901, end: 20130730
  5. AMITRIPTYLINE [Concomitant]
  6. CALCICHEW D3 [Concomitant]
  7. OMEPRAZOLE [Concomitant]
  8. TRAMADOL [Concomitant]

REACTIONS (4)
  - Vasculitic rash [None]
  - Purpura [None]
  - Malaise [None]
  - Drug reaction with eosinophilia and systemic symptoms [None]
